FAERS Safety Report 9227619 (Version 11)
Quarter: 2015Q1

REPORT INFORMATION
  Report Type: Spontaneous
  Country: US (occurrence: US)
  Receive Date: 20130412
  Receipt Date: 20150122
  Transmission Date: 20150721
  Serious: Yes (Hospitalization, Other)
  Sender: FDA-Public Use
  Company Number: US-009507513-1206USA04841

PATIENT
  Sex: Female

DRUGS (4)
  1. FOSAMAX [Suspect]
     Active Substance: ALENDRONATE SODIUM
     Dosage: 70 MG, UNK
     Route: 048
  2. FOSAMAX [Suspect]
     Active Substance: ALENDRONATE SODIUM
     Indication: OSTEOPETROSIS
     Dosage: UNK
     Route: 048
     Dates: start: 1998, end: 20100115
  3. FOSAMAX [Suspect]
     Active Substance: ALENDRONATE SODIUM
     Indication: OSTEOPETROSIS
     Dosage: UNK MG, UNK
     Route: 048
  4. ALENDRONATE SODIUM. [Suspect]
     Active Substance: ALENDRONATE SODIUM
     Dosage: 70 MG, UNK
     Route: 048

REACTIONS (45)
  - Spinal osteoarthritis [Unknown]
  - Chronic obstructive pulmonary disease [Unknown]
  - Appendicectomy [Unknown]
  - Systolic dysfunction [Unknown]
  - Atelectasis [Unknown]
  - Pneumonia [Unknown]
  - Femur fracture [Unknown]
  - Intramedullary rod insertion [Unknown]
  - Hypertension [Unknown]
  - Adverse event [Unknown]
  - Oxygen saturation decreased [Unknown]
  - Femur fracture [Unknown]
  - Low turnover osteopathy [Unknown]
  - Parotidectomy [Unknown]
  - Haemangioma removal [Unknown]
  - Pulmonary hypertension [Unknown]
  - Postoperative wound infection [Unknown]
  - Aortic aneurysm [Unknown]
  - Arthralgia [Unknown]
  - Lipoma excision [Unknown]
  - Pain in extremity [Unknown]
  - Oedema peripheral [Unknown]
  - Hip arthroplasty [Unknown]
  - Aphasia [Recovering/Resolving]
  - Carotid artery stenosis [Unknown]
  - Tonsillectomy [Unknown]
  - Arthroscopy [Unknown]
  - Anaemia postoperative [Unknown]
  - Peripheral endarterectomy [Unknown]
  - Hemiparesis [Recovering/Resolving]
  - Coronary artery disease [Unknown]
  - Wound dehiscence [Unknown]
  - Cerebrovascular accident [Unknown]
  - Osteoarthritis [Unknown]
  - Sleep apnoea syndrome [Unknown]
  - Branchial cyst [Unknown]
  - Hip arthroplasty [Unknown]
  - Wound abscess [Unknown]
  - Cholecystectomy [Unknown]
  - Debridement [Unknown]
  - Osteoporosis [Unknown]
  - Cataract operation [Unknown]
  - Arteriosclerosis coronary artery [Unknown]
  - Cardiac failure congestive [Unknown]
  - Gastrooesophageal reflux disease [Unknown]

NARRATIVE: CASE EVENT DATE: 2004
